FAERS Safety Report 21253213 (Version 1)
Quarter: 2022Q3

REPORT INFORMATION
  Report Type: Spontaneous
  Country: US (occurrence: None)
  Receive Date: 20220824
  Receipt Date: 20220824
  Transmission Date: 20221027
  Serious: Yes (Hospitalization)
  Sender: FDA-Public Use
  Company Number: None

PATIENT
  Age: 36 Year
  Sex: Female
  Weight: 68.04 kg

DRUGS (3)
  1. CARBOPLATIN [Suspect]
     Active Substance: CARBOPLATIN
     Dates: end: 20220622
  2. FEMARA [Suspect]
     Active Substance: LETROZOLE
     Dates: end: 20220820
  3. TAXOL [Suspect]
     Active Substance: PACLITAXEL
     Dates: end: 20220622

REACTIONS (5)
  - Nausea [None]
  - Vomiting [None]
  - Food intolerance [None]
  - Cardiac ventricular thrombosis [None]
  - Disease progression [None]

NARRATIVE: CASE EVENT DATE: 20220820
